FAERS Safety Report 10949202 (Version 1)
Quarter: 2015Q1

REPORT INFORMATION
  Report Type: Spontaneous
  Country: TH (occurrence: TH)
  Receive Date: 20150324
  Receipt Date: 20150324
  Transmission Date: 20150721
  Serious: Yes (Death, Other)
  Sender: FDA-Public Use
  Company Number: TH-BAYER-2015-050197

PATIENT
  Age: 35 Year
  Sex: Female

DRUGS (15)
  1. AZITHROMYCIN [Concomitant]
     Active Substance: AZITHROMYCIN ANHYDROUS
     Indication: MYCOBACTERIAL INFECTION
     Dosage: DAILY DOSE 500 MG
  2. AZITHROMYCIN [Concomitant]
     Active Substance: AZITHROMYCIN ANHYDROUS
     Indication: CENTRAL NERVOUS SYSTEM INFECTION
  3. RIFAMPICIN [Concomitant]
     Active Substance: RIFAMPIN
     Indication: MYCOBACTERIAL INFECTION
     Dosage: DAILY DOSE 600 MG
  4. ISONIAZID. [Concomitant]
     Active Substance: ISONIAZID
     Indication: MYCOBACTERIAL INFECTION
     Dosage: DAILY DOSE 300 MG
  5. AMIKACIN [Concomitant]
     Active Substance: AMIKACIN
     Indication: CENTRAL NERVOUS SYSTEM INFECTION
  6. PYRAZINAMIDE. [Concomitant]
     Active Substance: PYRAZINAMIDE
     Indication: CENTRAL NERVOUS SYSTEM INFECTION
  7. ETHAMBUTOL [Concomitant]
     Active Substance: ETHAMBUTOL HYDROCHLORIDE
     Indication: MYCOBACTERIAL INFECTION
     Dosage: DAILY DOSE 800 MG
  8. DEXAMETHASONE. [Concomitant]
     Active Substance: DEXAMETHASONE
     Indication: CENTRAL NERVOUS SYSTEM INFECTION
  9. PYRAZINAMIDE. [Concomitant]
     Active Substance: PYRAZINAMIDE
     Indication: MYCOBACTERIAL INFECTION
     Dosage: DAILY DOSE 1250 MG
  10. AMIKACIN [Concomitant]
     Active Substance: AMIKACIN
     Indication: MYCOBACTERIAL INFECTION
     Dosage: DAILY DOSE 750 MG
  11. ETHAMBUTOL [Concomitant]
     Active Substance: ETHAMBUTOL HYDROCHLORIDE
     Indication: CENTRAL NERVOUS SYSTEM INFECTION
  12. RIFAMPICIN [Concomitant]
     Active Substance: RIFAMPIN
     Indication: CENTRAL NERVOUS SYSTEM INFECTION
  13. CIPROFLOXACIN. [Suspect]
     Active Substance: CIPROFLOXACIN
     Indication: MYCOBACTERIAL INFECTION
     Dosage: DAILY DOSE 1000 MG
  14. CIPROFLOXACIN. [Suspect]
     Active Substance: CIPROFLOXACIN
     Indication: CENTRAL NERVOUS SYSTEM INFECTION
  15. ISONIAZID. [Concomitant]
     Active Substance: ISONIAZID
     Indication: CENTRAL NERVOUS SYSTEM INFECTION

REACTIONS (3)
  - Drug ineffective for unapproved indication [None]
  - Urinary tract infection [Not Recovered/Not Resolved]
  - Septic shock [Fatal]
